FAERS Safety Report 19810219 (Version 1)
Quarter: 2021Q3

REPORT INFORMATION
  Report Type: Spontaneous
  Country: US (occurrence: US)
  Receive Date: 20210909
  Receipt Date: 20210909
  Transmission Date: 20211014
  Serious: Yes (Life-Threatening)
  Sender: FDA-Public Use
  Company Number: None

PATIENT
  Age: 46 Year
  Sex: Female
  Weight: 74.25 kg

DRUGS (1)
  1. HYDROCHLOROTHIAZIDE 25 MG TABLETS [Suspect]
     Active Substance: HYDROCHLOROTHIAZIDE
     Indication: HYPERTENSION
     Route: 048
     Dates: start: 20210109, end: 20210114

REACTIONS (6)
  - Blood chloride decreased [None]
  - Palpitations [None]
  - Pain [None]
  - Blood potassium decreased [None]
  - Blood sodium decreased [None]
  - Blood calcium decreased [None]

NARRATIVE: CASE EVENT DATE: 20210114
